FAERS Safety Report 18252743 (Version 1)
Quarter: 2020Q3

REPORT INFORMATION
  Report Type: Report from Study
  Country: US (occurrence: US)
  Receive Date: 20200910
  Receipt Date: 20200910
  Transmission Date: 20201103
  Serious: No
  Sender: FDA-Public Use
  Company Number: NVSC2020US248188

PATIENT
  Sex: Male

DRUGS (1)
  1. COSENTYX [Suspect]
     Active Substance: SECUKINUMAB
     Indication: PSORIASIS
     Dosage: 300 MG, QW (300MG Q WEEKLY X 5 WEEKS THEN 300MG Q 4 WEEKS)
     Route: 058
     Dates: start: 202006

REACTIONS (1)
  - Drug ineffective [Unknown]
